FAERS Safety Report 18872801 (Version 1)
Quarter: 2021Q1

REPORT INFORMATION
  Report Type: Spontaneous
  Country: RU (occurrence: RU)
  Receive Date: 20210210
  Receipt Date: 20210210
  Transmission Date: 20210420
  Serious: Yes (Other)
  Sender: FDA-Public Use
  Company Number: RU-ROCHE-2764102

PATIENT
  Age: 58 Year
  Sex: Female

DRUGS (6)
  1. BENDAMUSTINE [Suspect]
     Active Substance: BENDAMUSTINE
     Indication: B-CELL LYMPHOMA
     Dosage: 6 CYCLES OF GB WITH INCREASING ANTITUMOR EFFECT WERE PERFORMED
     Route: 065
     Dates: start: 201705, end: 201712
  2. VINCRISTINE [Concomitant]
     Active Substance: VINCRISTINE
     Indication: B-CELL LYMPHOMA
     Dosage: 9 CYCLES R?CHOP?21 (WITH PEGYLATED LIPOSOMAL DOXORUBICIN)
     Dates: start: 201604, end: 201612
  3. PREDNISONE. [Concomitant]
     Active Substance: PREDNISONE
     Indication: B-CELL LYMPHOMA
     Dosage: 9 CYCLES R?CHOP?21 (WITH PEGYLATED LIPOSOMAL DOXORUBICIN)
     Dates: start: 201604, end: 201612
  4. CYCLOPHOSPHAMIDE. [Concomitant]
     Active Substance: CYCLOPHOSPHAMIDE
     Indication: B-CELL LYMPHOMA
     Dosage: 9 CYCLES R?CHOP?21 (WITH PEGYLATED LIPOSOMAL DOXORUBICIN)
     Dates: start: 201604, end: 201612
  5. DOXORUBICIN [Concomitant]
     Active Substance: DOXORUBICIN
     Indication: B-CELL LYMPHOMA
     Dosage: 9 CYCLES R?CHOP?21 (WITH PEGYLATED LIPOSOMAL DOXORUBICIN)
     Dates: start: 201604, end: 201612
  6. RITUXIMAB. [Suspect]
     Active Substance: RITUXIMAB
     Indication: B-CELL LYMPHOMA
     Dosage: 9 CYCLES R?CHOP?21 (WITH PEGYLATED LIPOSOMAL DOXORUBICIN)
     Route: 065
     Dates: start: 201604, end: 201612

REACTIONS (2)
  - Body temperature increased [Recovered/Resolved]
  - B-cell lymphoma [Recovered/Resolved]
